FAERS Safety Report 6349392-7 (Version None)
Quarter: 2009Q3

REPORT INFORMATION
  Report Type: 
  Country: None (occurrence: None)
  Receive Date: 20090911
  Receipt Date: 20090827
  Transmission Date: 20100115
  Serious: Yes (Other)
  Sender: FDA-Public Use
  Company Number: AU-PFIZER INC-2009260331

PATIENT

DRUGS (7)
  1. LIPITOR [Suspect]
     Dosage: 10 MG, UNK
  2. ASMOL [Concomitant]
     Indication: ASTHMA
  3. SYMBICORT [Concomitant]
     Indication: ASTHMA
  4. PULMICORT-100 [Concomitant]
     Indication: ASTHMA
  5. IMIGRAN [Concomitant]
     Indication: MIGRAINE
  6. FOSAMAX [Concomitant]
  7. ENDEP [Concomitant]

REACTIONS (2)
  - DYSPNOEA [None]
  - PRODUCTIVE COUGH [None]
